FAERS Safety Report 11239427 (Version 1)
Quarter: 2015Q3

REPORT INFORMATION
  Report Type: Spontaneous
  Country: JP (occurrence: None)
  Receive Date: 20150701
  Receipt Date: 20150701
  Transmission Date: 20151125
  Serious: Yes (Hospitalization)
  Sender: FDA-Public Use
  Company Number: JP-2015VAL000412

PATIENT
  Age: 55 Year
  Sex: Male

DRUGS (12)
  1. SILECE (FLUNITRAZEPAM) [Concomitant]
  2. SELBEX (TEPRONONE) [Concomitant]
  3. QUETIAPINE [Concomitant]
     Active Substance: QUETIAPINE
  4. TANKARU (CALCIUM CARBONATE) [Concomitant]
  5. BESACOLIN (BETHANECHOL CHLORIDE) [Concomitant]
  6. TAMSULOSIN HYDROCHLORIDE. [Concomitant]
     Active Substance: TAMSULOSIN HYDROCHLORIDE
  7. PARIET (RABEPRAZOLE SODIUM) (20 MG, GASTRO-RESISTANT TABLET) (RABEPRAZOLE SODIUM) [Concomitant]
     Active Substance: RABEPRAZOLE SODIUM
  8. PEGASYS [Suspect]
     Active Substance: PEGINTERFERON ALFA-2A
     Indication: CHRONIC HEPATITIS C
     Dosage: 90 UG, 1 IN 2 WK
     Route: 058
     Dates: start: 20140922
  9. HALCION (TRIAZOLAM) [Concomitant]
  10. HIRNAMIN /00038601/ (LEVOMEPROMAZINE) [Concomitant]
  11. ROCALTROL [Suspect]
     Active Substance: CALCITRIOL
     Indication: PRODUCT USED FOR UNKNOWN INDICATION
     Dosage: 0.25 UG, QD, AFTER DINNER
     Route: 048
     Dates: start: 20150415, end: 20150612
  12. DEPAS (ETIZOLAM) [Concomitant]

REACTIONS (6)
  - Myoglobin urine present [None]
  - Hypercalcaemia [None]
  - Acute kidney injury [None]
  - Rhabdomyolysis [None]
  - Blood creatine phosphokinase increased [None]
  - Myoglobin blood increased [None]

NARRATIVE: CASE EVENT DATE: 20150414
